FAERS Safety Report 7639203-1 (Version None)
Quarter: 2011Q3

REPORT INFORMATION
  Report Type: 
  Country: None (occurrence: None)
  Receive Date: 20110727
  Receipt Date: 20110718
  Transmission Date: 20111222
  Serious: Yes (Other)
  Sender: FDA-Public Use
  Company Number: US-JNJFOC-20110707564

PATIENT
  Sex: Female
  Weight: 81.65 kg

DRUGS (2)
  1. ALL OTHER THERAPEUTIC DRUG [Concomitant]
     Indication: HYPERTENSION
  2. REMICADE [Suspect]
     Indication: RHEUMATOID ARTHRITIS
     Route: 042
     Dates: start: 20100101

REACTIONS (3)
  - HYPOTENSION [None]
  - PNEUMONIA [None]
  - LUPUS-LIKE SYNDROME [None]
